FAERS Safety Report 9251379 (Version 1)
Quarter: 2013Q2

REPORT INFORMATION
  Report Type: Spontaneous
  Country: US (occurrence: US)
  Receive Date: 20130424
  Receipt Date: 20130424
  Transmission Date: 20140414
  Serious: Yes (Hospitalization, Other)
  Sender: FDA-Public Use
  Company Number: US-PFIZER INC-2013099877

PATIENT
  Age: 32 Year
  Sex: Female
  Weight: 85.71 kg

DRUGS (5)
  1. REVATIO [Suspect]
     Indication: PULMONARY ARTERIAL HYPERTENSION
     Dosage: UNK
  2. REVATIO [Suspect]
     Dosage: 80 MG, 2X/DAY
     Dates: start: 2013
  3. COREG [Concomitant]
     Indication: BLOOD PRESSURE ABNORMAL
     Dosage: UNK
  4. LASIX [Concomitant]
     Dosage: UNK
  5. XANAX [Concomitant]
     Dosage: UNK

REACTIONS (3)
  - Lung disorder [Unknown]
  - Pneumonia [Unknown]
  - Off label use [Unknown]
